FAERS Safety Report 10855431 (Version 2)
Quarter: 2015Q2

REPORT INFORMATION
  Report Type: Spontaneous
  Country: US (occurrence: US)
  Receive Date: 20150223
  Receipt Date: 20150421
  Transmission Date: 20150821
  Serious: Yes (Hospitalization)
  Sender: FDA-Public Use
  Company Number: US-ENDO PHARMACEUTICALS INC-PINX20150014

PATIENT
  Sex: Female

DRUGS (6)
  1. PAIN MEDICATIONS [Concomitant]
     Active Substance: UNSPECIFIED INGREDIENT
     Indication: BACK PAIN
     Dosage: UNKNOWN
     Route: 065
  2. SYNTHROID [Concomitant]
     Active Substance: LEVOTHYROXINE SODIUM
     Indication: HYPOTHYROIDISM
     Dosage: UNKNOWN
     Route: 065
  3. LASIX [Concomitant]
     Active Substance: FUROSEMIDE
     Indication: FLUID RETENTION
     Dosage: UNKNOWN
     Route: 065
  4. PIN-X [Suspect]
     Active Substance: PYRANTEL PAMOATE
     Indication: ENTEROBIASIS
     Dosage: UNKNOWN
     Route: 065
     Dates: start: 201412, end: 201412
  5. ATROVENT [Concomitant]
     Active Substance: IPRATROPIUM BROMIDE
     Indication: PRODUCT USED FOR UNKNOWN INDICATION
     Dosage: UNKNOWN
     Route: 065
  6. PIN-X [Suspect]
     Active Substance: PYRANTEL PAMOATE
     Dosage: UNKNOWN
     Route: 065
     Dates: start: 201411

REACTIONS (5)
  - Gastrointestinal bacterial infection [Unknown]
  - Drug ineffective [Recovered/Resolved]
  - Nausea [Recovering/Resolving]
  - Rash papular [Recovering/Resolving]
  - Incorrect dose administered [Recovered/Resolved]

NARRATIVE: CASE EVENT DATE: 201411
